FAERS Safety Report 8455121-3 (Version None)
Quarter: 2012Q2

REPORT INFORMATION
  Report Type: 
  Country: None (occurrence: None)
  Receive Date: 20120614
  Receipt Date: 20120612
  Transmission Date: 20120825
  Serious: Yes (Other)
  Sender: FDA-Public Use
  Company Number: ADR-2010-8199

PATIENT
  Sex: Female

DRUGS (6)
  1. LIORESAL [Suspect]
     Indication: MUSCLE SPASTICITY
     Dosage: 476.2 - 232.8 MCG,DAIL
  2. CLONAZEPAM [Concomitant]
  3. VYVANSE [Concomitant]
  4. FLUOXETINE [Concomitant]
  5. SINEQUAN [Concomitant]
  6. NAPROXEN (ALEVE) [Concomitant]

REACTIONS (3)
  - ASTHENIA [None]
  - GAIT DISTURBANCE [None]
  - NO THERAPEUTIC RESPONSE [None]
